FAERS Safety Report 7203981-6 (Version None)
Quarter: 2010Q4

REPORT INFORMATION
  Report Type: 
  Country: None (occurrence: None)
  Receive Date: 20101230
  Receipt Date: 20101221
  Transmission Date: 20110411
  Serious: Yes (Hospitalization)
  Sender: FDA-Public Use
  Company Number: US-AMGEN-USASP2010010433

PATIENT

DRUGS (1)
  1. ENBREL [Suspect]
     Indication: PSORIASIS
     Dosage: 50 MG, 2 TIMES/WK
     Dates: start: 20050401, end: 20101219

REACTIONS (5)
  - ARRHYTHMIA [None]
  - HEADACHE [None]
  - HEART RATE INCREASED [None]
  - PANCREATITIS [None]
  - PYREXIA [None]
